FAERS Safety Report 6992211-6 (Version None)
Quarter: 2010Q3

REPORT INFORMATION
  Report Type: 
  Country: None (occurrence: None)
  Receive Date: 20100917
  Receipt Date: 20100913
  Transmission Date: 20110219
  Serious: Yes (Other)
  Sender: FDA-Public Use
  Company Number: FR-BRISTOL-MYERS SQUIBB COMPANY-15284318

PATIENT
  Age: 21 Year
  Sex: Male

DRUGS (3)
  1. REYATAZ [Suspect]
     Dates: start: 20100712
  2. TRUVADA [Suspect]
     Dates: start: 20100712
  3. NORVIR [Suspect]
     Dates: start: 20100712

REACTIONS (1)
  - HEPATITIS [None]
